FAERS Safety Report 6046643-3 (Version None)
Quarter: 2009Q1

REPORT INFORMATION
  Report Type: 
  Country: None (occurrence: None)
  Receive Date: 20090122
  Receipt Date: 20090115
  Transmission Date: 20090719
  Serious: Yes (Congenital Anomaly)
  Sender: FDA-Public Use
  Company Number: FR-JNJFOC-20071002735

PATIENT
  Sex: Female

DRUGS (4)
  1. HALDOL [Suspect]
     Indication: DRUG EXPOSURE DURING PREGNANCY
  2. SEROPRAM [Suspect]
     Indication: DRUG EXPOSURE DURING PREGNANCY
  3. PRAXINOR [Suspect]
     Indication: DRUG EXPOSURE DURING PREGNANCY
  4. LEXOMIL ROCHE [Suspect]
     Indication: DRUG EXPOSURE DURING PREGNANCY

REACTIONS (6)
  - FEEDING DISORDER NEONATAL [None]
  - FOETAL GROWTH RETARDATION [None]
  - HYPOTONIA [None]
  - INFANTILE APNOEIC ATTACK [None]
  - MICROCEPHALY [None]
  - RENAL HYPOPLASIA [None]
